FAERS Safety Report 21344358 (Version 10)
Quarter: 2023Q1

REPORT INFORMATION
  Report Type: Report from Study
  Country: NL (occurrence: None)
  Receive Date: 20220916
  Receipt Date: 20230130
  Transmission Date: 20230418
  Serious: Yes (Hospitalization)
  Sender: FDA-Public Use
  Company Number: NL-Eisai Medical Research-EC-2022-123482

PATIENT
  Age: 62 Year
  Sex: Male
  Weight: 95.4 kg

DRUGS (15)
  1. LENVATINIB [Suspect]
     Active Substance: LENVATINIB
     Indication: Renal cell carcinoma
     Dosage: STARTING DOSE: 20 MILLIGRAM, FLUCTUATED DOSE
     Route: 048
     Dates: start: 20211227
  2. BELZUTIFAN [Suspect]
     Active Substance: BELZUTIFAN
     Indication: Renal cell carcinoma
     Route: 048
     Dates: start: 20211227
  3. CETIRIZINE HYDROCHLORIDE [Concomitant]
     Active Substance: CETIRIZINE HYDROCHLORIDE
     Dates: start: 20210303
  4. FLUTICASONE FUROATE [Concomitant]
     Active Substance: FLUTICASONE FUROATE
     Dates: start: 20210326
  5. CLOBETASOL PROPIONATE [Concomitant]
     Active Substance: CLOBETASOL PROPIONATE
     Dates: start: 20211026
  6. BETAMETHASONE [Concomitant]
     Active Substance: BETAMETHASONE
     Dates: start: 20211029, end: 20220907
  7. ACETAMINOPHEN [Concomitant]
     Active Substance: ACETAMINOPHEN
     Dates: start: 20220112, end: 20220814
  8. METOPROLOL [Concomitant]
     Active Substance: METOPROLOL
     Dates: start: 20220208
  9. VITAMIN D NOS [Concomitant]
     Active Substance: VITAMIN D NOS
     Dates: start: 202111
  10. HYPROMELLOSES [Concomitant]
     Active Substance: HYPROMELLOSES
     Dates: start: 20220214, end: 20220907
  11. HYDROCORTISONE;OXYTETRACYCLINE;POLYMYXIN B [Concomitant]
     Dates: start: 20220214, end: 20220816
  12. HYDROCORTISONE [Concomitant]
     Active Substance: HYDROCORTISONE
     Dates: start: 20210315
  13. DARBEPOETIN ALFA [Concomitant]
     Active Substance: DARBEPOETIN ALFA
     Route: 058
     Dates: start: 20220518, end: 20220816
  14. BARNIDIPINE [Concomitant]
     Active Substance: BARNIDIPINE
     Dates: start: 20220608
  15. OXYCODONE HYDROCHLORIDE [Concomitant]
     Active Substance: OXYCODONE HYDROCHLORIDE
     Dates: start: 20220811, end: 20220907

REACTIONS (1)
  - Dyspnoea [Recovered/Resolved]

NARRATIVE: CASE EVENT DATE: 20220815
